FAERS Safety Report 19646272 (Version 1)
Quarter: 2021Q3

REPORT INFORMATION
  Report Type: Spontaneous
  Country: DE (occurrence: DE)
  Receive Date: 20210802
  Receipt Date: 20210802
  Transmission Date: 20211014
  Serious: Yes (Hospitalization, Other)
  Sender: FDA-Public Use
  Company Number: DE-ACCORD-234017

PATIENT
  Age: 54 Year
  Sex: Female
  Weight: 74 kg

DRUGS (3)
  1. BISOLLICH [Concomitant]
     Indication: VASCULAR DEVICE USER
     Dosage: 2.5 MG, 1 IN THE MORNING
     Route: 048
     Dates: start: 201802
  2. ATORVASTATIN ACCORD [Suspect]
     Active Substance: ATORVASTATIN
     Indication: PRODUCT USED FOR UNKNOWN INDICATION
     Dosage: 40 MG FILM?COATED TABLETS, 1 IN THE EVENING
     Dates: start: 20210601, end: 20210615
  3. ASS 100 [Concomitant]
     Active Substance: ASPIRIN
     Indication: MYOCARDIAL INFARCTION
     Dosage: 1 IN THE MORNING
     Route: 048
     Dates: start: 201802

REACTIONS (2)
  - Postmenopausal haemorrhage [Recovered/Resolved]
  - Off label use [Unknown]

NARRATIVE: CASE EVENT DATE: 20210601
